FAERS Safety Report 18665733 (Version 1)
Quarter: 2020Q4

REPORT INFORMATION
  Report Type: Spontaneous
  Country: GB (occurrence: GB)
  Receive Date: 20201226
  Receipt Date: 20201226
  Transmission Date: 20210114
  Serious: No
  Sender: FDA-Public Use
  Company Number: GB-LUPIN PHARMACEUTICALS INC.-2020-07767

PATIENT
  Age: 50 Year
  Sex: Male

DRUGS (2)
  1. PHENYTOIN SODIUM. [Suspect]
     Active Substance: PHENYTOIN SODIUM
     Dosage: 300 MILLIGRAM, QD (MAINTENANCE DOSE VIA NASOGASTRIC TUBE) (STOPPED)
     Route: 045
  2. PHENYTOIN SODIUM. [Suspect]
     Active Substance: PHENYTOIN SODIUM
     Indication: NEURALGIA
     Dosage: 10 MILLIGRAM/KILOGRAM, UNK (DOSE: 650MG)
     Route: 042

REACTIONS (1)
  - Off label use [Unknown]
